FAERS Safety Report 10873344 (Version 1)
Quarter: 2015Q1

REPORT INFORMATION
  Report Type: Spontaneous
  Country: GB (occurrence: None)
  Receive Date: 20150223
  Receipt Date: 20150223
  Transmission Date: 20150721
  Serious: Yes (Other)
  Sender: FDA-Public Use
  Company Number: 2746457

PATIENT
  Sex: Male

DRUGS (6)
  1. SODIUM CHLORIDE. [Suspect]
     Active Substance: SODIUM CHLORIDE
     Indication: COLORECTAL CANCER
  2. APREPITANT. [Concomitant]
     Active Substance: APREPITANT
  3. FLUOROURACIL. [Suspect]
     Active Substance: FLUOROURACIL
     Indication: COLORECTAL CANCER
     Route: 040
     Dates: start: 20141222
  4. FOLINIC ACID [Concomitant]
     Active Substance: LEUCOVORIN
     Dosage: OXMDG REGIME
  5. OXALIPLATIN. [Suspect]
     Active Substance: OXALIPLATIN
     Indication: COLORECTAL CANCER
     Route: 042
     Dates: start: 20141222
  6. RANITIDINE [Concomitant]
     Active Substance: RANITIDINE\RANITIDINE HYDROCHLORIDE

REACTIONS (5)
  - Neuropathy peripheral [None]
  - Malaise [None]
  - Mood swings [None]
  - Cough [None]
  - Fatigue [None]
